FAERS Safety Report 5684784-0 (Version None)
Quarter: 2008Q1

REPORT INFORMATION
  Report Type: 
  Country: None (occurrence: None)
  Receive Date: 20080328
  Receipt Date: 20070918
  Transmission Date: 20080703
  Serious: Yes (Other)
  Sender: FDA-Public Use
  Company Number: US-BRISTOL-MYERS SQUIBB COMPANY-13912415

PATIENT
  Age: 42 Year
  Sex: Male
  Weight: 65 kg

DRUGS (2)
  1. CETUXIMAB [Suspect]
     Indication: TONSIL CANCER
     Route: 041
     Dates: start: 20060822, end: 20061019
  2. RADIATION THERAPY [Suspect]
     Indication: TONSIL CANCER

REACTIONS (1)
  - RADIATION MUCOSITIS [None]
